FAERS Safety Report 19881997 (Version 3)
Quarter: 2021Q4

REPORT INFORMATION
  Report Type: Spontaneous
  Country: US (occurrence: US)
  Receive Date: 20210925
  Receipt Date: 20211021
  Transmission Date: 20220303
  Serious: Yes (Other)
  Sender: FDA-Public Use
  Company Number: US-ORGANON-O2109USA001870

PATIENT
  Age: 22 Year
  Sex: Female
  Weight: 212 kg

DRUGS (1)
  1. NEXPLANON [Suspect]
     Active Substance: ETONOGESTREL
     Indication: Contraception
     Dosage: 1 IMPLANT OF 68 MG, EVERY THREE YEARS
     Dates: start: 20210910, end: 20210921

REACTIONS (3)
  - Cellulitis [Unknown]
  - Implant site rash [Recovering/Resolving]
  - Menstrual disorder [Unknown]

NARRATIVE: CASE EVENT DATE: 20210101
